FAERS Safety Report 9866342 (Version 2)
Quarter: 2014Q1

REPORT INFORMATION
  Report Type: Spontaneous
  Country: US (occurrence: US)
  Receive Date: 20140203
  Receipt Date: 20140307
  Transmission Date: 20141002
  Serious: No
  Sender: FDA-Public Use
  Company Number: US-009507513-1401USA011827

PATIENT
  Sex: Female

DRUGS (7)
  1. ASMANEX TWISTHALER [Suspect]
     Dosage: 1 PUFF TWICE DAILY
     Route: 055
     Dates: start: 201312
  2. REMICADE [Concomitant]
  3. SINGULAIR [Concomitant]
     Route: 048
  4. PRILOSEC [Concomitant]
     Route: 048
  5. ARAVA [Concomitant]
  6. GABAPENTIN [Concomitant]
  7. TYLENOL [Concomitant]

REACTIONS (3)
  - Dyspnoea [Not Recovered/Not Resolved]
  - Product quality issue [Unknown]
  - Drug dose omission [Unknown]
